FAERS Safety Report 7634451-9 (Version None)
Quarter: 2011Q3

REPORT INFORMATION
  Report Type: 
  Country: None (occurrence: None)
  Receive Date: 20110725
  Receipt Date: 20110719
  Transmission Date: 20111222
  Serious: Yes (Death, Other)
  Sender: FDA-Public Use
  Company Number: PHHY2011JP19611

PATIENT
  Age: 9 Year
  Sex: Male

DRUGS (3)
  1. HYPER-CVAD [Concomitant]
     Indication: ACUTE LYMPHOCYTIC LEUKAEMIA
  2. METHOTREXATE [Interacting]
  3. GLEEVEC [Suspect]
     Indication: ACUTE LYMPHOCYTIC LEUKAEMIA
     Dosage: UNK
     Route: 048

REACTIONS (11)
  - PNEUMONIA RESPIRATORY SYNCYTIAL VIRAL [None]
  - HISTIOCYTOSIS HAEMATOPHAGIC [None]
  - ACUTE LYMPHOCYTIC LEUKAEMIA [None]
  - PYREXIA [None]
  - RENAL IMPAIRMENT [None]
  - ACUTE LYMPHOCYTIC LEUKAEMIA RECURRENT [None]
  - DRUG INTERACTION [None]
  - COUGH [None]
  - THROMBOTIC MICROANGIOPATHY [None]
  - RENAL DISORDER [None]
  - NEOPLASM MALIGNANT [None]
